FAERS Safety Report 23290581 (Version 3)
Quarter: 2023Q4

REPORT INFORMATION
  Report Type: Report from Study
  Country: RU (occurrence: RU)
  Receive Date: 20231213
  Receipt Date: 20231222
  Transmission Date: 20240109
  Serious: Yes (Other)
  Sender: FDA-Public Use
  Company Number: RU-002147023-NVSC2023RU261132

PATIENT
  Age: 2 Year
  Sex: Male
  Weight: 13 kg

DRUGS (4)
  1. ZOLGENSMA [Suspect]
     Active Substance: ONASEMNOGENE ABEPARVOVEC-XIOI
     Indication: Spinal muscular atrophy
     Dosage: 74.3 ML, ONCE/SINGLE
     Route: 041
     Dates: start: 20231115, end: 20231115
  2. CHOLECALCIFEROL [Concomitant]
     Active Substance: CHOLECALCIFEROL
     Indication: Product used for unknown indication
     Dosage: 3 DROPS (1500 IU), EVERY DAY IN THE MORNING
     Route: 048
     Dates: start: 20231115
  3. PREDNISOLONE [Concomitant]
     Active Substance: PREDNISOLONE
     Indication: Product used for unknown indication
     Dosage: 2 TABLET PLUS 3/4 TABLET, 1MG/KG T IN THE MORNING, AFTER A LIGHT BREAKFAST
     Route: 065
     Dates: start: 20231114
  4. ESOMEPRAZOLE [Concomitant]
     Active Substance: ESOMEPRAZOLE
     Indication: Product used for unknown indication
     Dosage: 15 MG, 1.5 SACHETS, BEFORE GOING TO SLEEP
     Route: 065
     Dates: start: 20231114

REACTIONS (3)
  - Tremor [Not Recovered/Not Resolved]
  - Body temperature increased [Recovered/Resolved with Sequelae]
  - Blood test abnormal [Not Recovered/Not Resolved]

NARRATIVE: CASE EVENT DATE: 20231115
